FAERS Safety Report 18753043 (Version 2)
Quarter: 2021Q2

REPORT INFORMATION
  Report Type: Report from Study
  Country: US (occurrence: US)
  Receive Date: 20210118
  Receipt Date: 20210420
  Transmission Date: 20210717
  Serious: Yes (Other)
  Sender: FDA-Public Use
  Company Number: US-TAKEDA-US202000881

PATIENT
  Age: 56 Year
  Sex: Female

DRUGS (2)
  1. HUMAN NORMAL IMMUNOGLOBULIN; LIQUID [Suspect]
     Active Substance: HUMAN IMMUNOGLOBULIN G
     Dosage: 30 GRAM
     Route: 042
  2. HUMAN NORMAL IMMUNOGLOBULIN; LIQUID [Suspect]
     Active Substance: HUMAN IMMUNOGLOBULIN G
     Indication: PRIMARY IMMUNODEFICIENCY SYNDROME
     Dosage: UNK
     Route: 042

REACTIONS (19)
  - Polyp [Unknown]
  - Blood pressure abnormal [Not Recovered/Not Resolved]
  - Seasonal allergy [Unknown]
  - Breast swelling [Unknown]
  - Hallucination [Unknown]
  - Gastrointestinal disorder [Not Recovered/Not Resolved]
  - Chronic sinusitis [Not Recovered/Not Resolved]
  - Weight increased [Unknown]
  - Back pain [Unknown]
  - Malaise [Unknown]
  - Stress urinary incontinence [Unknown]
  - Blood cholesterol increased [Unknown]
  - Fatigue [Unknown]
  - Hypersensitivity [Unknown]
  - Staphylococcal infection [Unknown]
  - Abdominal distension [Unknown]
  - Lethargy [Unknown]
  - Fatigue [Unknown]
  - Sinus disorder [Not Recovered/Not Resolved]

NARRATIVE: CASE EVENT DATE: 20200716
